FAERS Safety Report 4460111-1 (Version None)
Quarter: 2004Q3

REPORT INFORMATION
  Report Type: 
  Country: None (occurrence: None)
  Receive Date: 20040928
  Receipt Date: 20031212
  Transmission Date: 20050211
  Serious: No
  Sender: FDA-Public Use
  Company Number: US-GLAXOSMITHKLINE-A0442989A

PATIENT
  Age: 63 Year
  Sex: Female

DRUGS (3)
  1. SALMETEROL XINAFOATE [Suspect]
     Route: 055
     Dates: start: 20030901
  2. COMBIVENT [Concomitant]
  3. HYPERTENSION MED [Concomitant]

REACTIONS (1)
  - CHRONIC OBSTRUCTIVE AIRWAYS DISEASE EXACERBATED [None]
